FAERS Safety Report 4877616-1 (Version None)
Quarter: 2006Q1

REPORT INFORMATION
  Report Type: 
  Country: None (occurrence: None)
  Receive Date: 20060111
  Receipt Date: 20051122
  Transmission Date: 20060701
  Serious: Yes (Hospitalization)
  Sender: FDA-Public Use
  Company Number: HQWYE725229NOV05

PATIENT
  Sex: Female

DRUGS (15)
  1. ENBREL [Suspect]
     Indication: RHEUMATOID ARTHRITIS
     Route: 058
     Dates: start: 20050621, end: 20051205
  2. ISONIAZID [Suspect]
     Dosage: UNKNOWN
     Route: 048
     Dates: end: 20051001
  3. RHEUMATREX [Concomitant]
     Dosage: 2 MG
     Route: 048
     Dates: end: 20051101
  4. PREDNISOLONE [Concomitant]
  5. LORNOXICAM [Concomitant]
  6. LOSARTAN POTASSIUM [Concomitant]
  7. LACTOBACILLUS BIFIDUS, LYOPHILIZED [Concomitant]
  8. MAGNESIUM OXIDE [Concomitant]
  9. POLYCARBOPHIL CALCIUM [Concomitant]
  10. TOCOPHERYL NICOTINATE [Concomitant]
  11. ALFACALCIDOL [Concomitant]
  12. LIMAPROST [Concomitant]
  13. ALENDRONATE SODIUM [Concomitant]
  14. RABEPRAZOLE SODIUM [Concomitant]
  15. GASMOTIN [Concomitant]

REACTIONS (2)
  - HEPATIC ENZYME ABNORMAL [None]
  - RASH [None]
